FAERS Safety Report 23196014 (Version 1)
Quarter: 2023Q4

REPORT INFORMATION
  Report Type: Spontaneous
  Country: US (occurrence: None)
  Receive Date: 20231116
  Receipt Date: 20231116
  Transmission Date: 20240110
  Serious: Yes (Death)
  Sender: FDA-Public Use
  Company Number: None

PATIENT
  Age: 82 Year
  Sex: Male

DRUGS (10)
  1. CAPECITABINE [Suspect]
     Active Substance: CAPECITABINE
     Indication: Colon cancer
     Dosage: FREQUENCY : TWICE A DAY;?
     Route: 048
  2. CAPECITABINE [Suspect]
     Active Substance: CAPECITABINE
     Indication: Colon cancer
  3. CAPECITABINE [Suspect]
     Active Substance: CAPECITABINE
     Indication: Lung neoplasm malignant
  4. Advair Diskus 250/50 mcg [Concomitant]
  5. ALBUTEROL [Concomitant]
     Active Substance: ALBUTEROL
  6. LOPERAMIDE [Concomitant]
     Active Substance: LOPERAMIDE
  7. PROAIR HFA [Concomitant]
     Active Substance: ALBUTEROL SULFATE
  8. Prochlorperazine 10 mg tablet [Concomitant]
  9. Centrum Silver 50+ [Concomitant]
  10. ACETAMINOPHEN [Concomitant]
     Active Substance: ACETAMINOPHEN

REACTIONS (1)
  - Malignant neoplasm progression [None]

NARRATIVE: CASE EVENT DATE: 20231115
